FAERS Safety Report 13037423 (Version 2)
Quarter: 2017Q1

REPORT INFORMATION
  Report Type: Report from Study
  Country: US (occurrence: US)
  Receive Date: 20161216
  Receipt Date: 20170109
  Transmission Date: 20170428
  Serious: No
  Sender: FDA-Public Use
  Company Number: PHEH2016US032835

PATIENT
  Age: 59 Year
  Sex: Female

DRUGS (1)
  1. COSENTYX [Suspect]
     Active Substance: SECUKINUMAB
     Indication: PRODUCT USED FOR UNKNOWN INDICATION
     Dosage: 150 MG, UNK
     Route: 065

REACTIONS (3)
  - Arthralgia [Unknown]
  - Incorrect dose administered [Not Recovered/Not Resolved]
  - Accidental exposure to product [Not Recovered/Not Resolved]

NARRATIVE: CASE EVENT DATE: 20161129
